FAERS Safety Report 6232691-7 (Version None)
Quarter: 2009Q2

REPORT INFORMATION
  Report Type: 
  Country: None (occurrence: None)
  Receive Date: 20090617
  Receipt Date: 20090608
  Transmission Date: 20091009
  Serious: Yes (Disabling, Other)
  Sender: FDA-Public Use
  Company Number: SE-PFIZER INC-2009218560

PATIENT
  Age: 36 Year

DRUGS (6)
  1. FRAGMIN [Suspect]
     Indication: THROMBOSIS PROPHYLAXIS
     Dosage: UNK IU, UNK
     Route: 065
     Dates: start: 20080611, end: 20090228
  2. MEDROL [Interacting]
     Indication: JUVENILE ARTHRITIS
     Dosage: 4 MG, 2X/DAY
     Route: 065
     Dates: start: 19920101
  3. AZATIOPRIN [Interacting]
     Indication: JUVENILE ARTHRITIS
     Dosage: 50 MG, 2X/DAY
     Route: 065
     Dates: start: 19920101
  4. FOLACIN [Concomitant]
     Dosage: UNK
     Route: 065
  5. TROMBYL [Concomitant]
     Dosage: UNK
     Route: 065
     Dates: start: 20080611
  6. KALCIPOS [Concomitant]
     Indication: PROPHYLAXIS
     Dosage: UNK
     Route: 065

REACTIONS (2)
  - DRUG INTERACTION [None]
  - INJECTION SITE DISCOLOURATION [None]
